FAERS Safety Report 24888812 (Version 3)
Quarter: 2025Q1

REPORT INFORMATION
  Report Type: Spontaneous
  Country: US (occurrence: US)
  Receive Date: 20250127
  Receipt Date: 20250326
  Transmission Date: 20250409
  Serious: Yes (Other)
  Sender: MYLAN
  Company Number: US-MYLANLABS-2025M1004968

PATIENT
  Age: 32 Year
  Sex: Female
  Weight: 66 kg

DRUGS (3)
  1. ROPIVACAINE HYDROCHLORIDE [Suspect]
     Active Substance: ROPIVACAINE HYDROCHLORIDE
     Indication: Labour pain
  2. OXYTOCIN [Concomitant]
     Active Substance: OXYTOCIN
  3. D5lrs [Concomitant]

REACTIONS (2)
  - Drug ineffective [Unknown]
  - Maternal exposure during pregnancy [Unknown]
